FAERS Safety Report 23946303 (Version 1)
Quarter: 2024Q2

REPORT INFORMATION
  Report Type: Spontaneous
  Country: US (occurrence: US)
  Receive Date: 20240606
  Receipt Date: 20240606
  Transmission Date: 20240716
  Serious: Yes (Other)
  Sender: FDA-Public Use
  Company Number: US-TEVA-VS-3205293

PATIENT

DRUGS (1)
  1. DEUTETRABENAZINE [Suspect]
     Active Substance: DEUTETRABENAZINE
     Indication: Chorea
     Route: 065

REACTIONS (3)
  - Dysphagia [Unknown]
  - Off label use [Unknown]
  - Sedation [Unknown]

NARRATIVE: CASE EVENT DATE: 20240529
